FAERS Safety Report 9649938 (Version 1)
Quarter: 2013Q4

REPORT INFORMATION
  Report Type: Spontaneous
  Country: US (occurrence: US)
  Receive Date: 20131028
  Receipt Date: 20131028
  Transmission Date: 20140711
  Serious: No
  Sender: FDA-Public Use
  Company Number: US-PURDUE-USA-2013-0100035

PATIENT
  Age: 64 Year
  Sex: Male
  Weight: 120 kg

DRUGS (2)
  1. OXYCODONE HYDROCHLORIDE (SIMILAR TO NDA 22-272) [Suspect]
     Indication: PAIN
     Dosage: 10 MG, TID
     Route: 048
     Dates: start: 20130226
  2. FENTANYL [Suspect]
     Indication: PAIN
     Dosage: (25MCG) 1 PATCH EVERY TWO DAYS
     Route: 062
     Dates: start: 20130226

REACTIONS (2)
  - Extra dose administered [Not Recovered/Not Resolved]
  - Drug ineffective [Not Recovered/Not Resolved]
